FAERS Safety Report 7905251-7 (Version None)
Quarter: 2011Q4

REPORT INFORMATION
  Report Type: 
  Country: None (occurrence: None)
  Receive Date: 20111109
  Receipt Date: 20111107
  Transmission Date: 20120403
  Serious: Yes (Other)
  Sender: FDA-Public Use
  Company Number: US-COVIDIEN/TYCO HEALTHCARE/MALLINCKRODT-T201102379

PATIENT
  Age: 42 Year
  Sex: Female

DRUGS (8)
  1. HYDROMORPHONE HCL [Suspect]
     Indication: PAIN
     Dosage: 13 TABLETS PRIOR TO ARRIVING AT THE CLINIC
  2. METHADOSE [Suspect]
     Indication: PAIN
     Dosage: 10 MG, TID
  3. TRAZODONE HYDROCHLORIDE [Concomitant]
  4. ARIPIPRAZOLE [Concomitant]
  5. HYDROMORPHONE HCL [Suspect]
     Dosage: 4 MG, QID
  6. TOPIRAMATE [Concomitant]
     Indication: PAIN
  7. CELECOXIB [Concomitant]
     Indication: PAIN
  8. BUPROPION HCL [Concomitant]

REACTIONS (7)
  - DRUG WITHDRAWAL SYNDROME [None]
  - OVERDOSE [None]
  - HEADACHE [None]
  - PAIN [None]
  - CONSTIPATION [None]
  - SEDATION [None]
  - VISUAL IMPAIRMENT [None]
